FAERS Safety Report 5554540-2 (Version None)
Quarter: 2007Q4

REPORT INFORMATION
  Report Type: 
  Country: None (occurrence: None)
  Receive Date: 20071130
  Receipt Date: 20070713
  Transmission Date: 20080405
  Serious: No
  Sender: FDA-Public Use
  Company Number: US200706004916

PATIENT
  Age: 54 Year
  Sex: Female

DRUGS (3)
  1. BYETTA [Suspect]
     Indication: TYPE 2 DIABETES MELLITUS
     Dosage: 5 UG, 2/D, SUBCUTANEOUS
     Route: 058
     Dates: start: 20070604
  2. EXENATIDE PEN, DISPOSABLE DEVICE (EXENATIDE PEN) PEN, DISPOSABLE [Concomitant]
  3. GLUCOPHAGE [Concomitant]

REACTIONS (2)
  - ABDOMINAL PAIN UPPER [None]
  - NAUSEA [None]
